FAERS Safety Report 14184836 (Version 1)
Quarter: 2017Q4

REPORT INFORMATION
  Report Type: Spontaneous
  Country: US (occurrence: US)
  Receive Date: 20171113
  Receipt Date: 20171113
  Transmission Date: 20180321
  Serious: No
  Sender: FDA-Public Use
  Company Number: US-BAUSCH-BL-2017-015886

PATIENT
  Sex: Female
  Weight: 83.54 kg

DRUGS (4)
  1. EQUATE EYE ITCH RELIEF [Suspect]
     Active Substance: KETOTIFEN FUMARATE
     Dosage: AS NEEDED
     Route: 047
  2. EYE ALLERGY RELIEF [Suspect]
     Active Substance: NAPHAZOLINE HYDROCHLORIDE\PHENIRAMINE MALEATE
     Indication: EYE ALLERGY
     Dosage: AS NEEDED
     Route: 047
     Dates: start: 2017
  3. EQUATE EYE ITCH RELIEF [Suspect]
     Active Substance: KETOTIFEN FUMARATE
     Indication: EYE ALLERGY
     Dosage: AS NEEDED
     Route: 047
  4. EQUATE EYE ITCH RELIEF [Suspect]
     Active Substance: KETOTIFEN FUMARATE
     Dosage: AS NEEDED
     Route: 047
     Dates: start: 20170410, end: 20170417

REACTIONS (1)
  - Drug ineffective [Unknown]

NARRATIVE: CASE EVENT DATE: 20170414
